FAERS Safety Report 20601243 (Version 1)
Quarter: 2022Q1

REPORT INFORMATION
  Report Type: Spontaneous
  Country: US (occurrence: None)
  Receive Date: 20220316
  Receipt Date: 20220316
  Transmission Date: 20220423
  Serious: Yes (Death, Life-Threatening, Hospitalization, Other)
  Sender: FDA-Public Use
  Company Number: 2022A110647

PATIENT

DRUGS (1)
  1. FARXIGA [Suspect]
     Active Substance: DAPAGLIFLOZIN PROPANEDIOL
     Indication: Cardiac failure
     Dosage: 10.0MG UNKNOWN
     Route: 048
     Dates: start: 20211026

REACTIONS (8)
  - Renal failure [Fatal]
  - Rash [Fatal]
  - Skin exfoliation [Fatal]
  - Genital infection male [Fatal]
  - Hepatic infection [Fatal]
  - Drug reaction with eosinophilia and systemic symptoms [Unknown]
  - Multiple organ dysfunction syndrome [Fatal]
  - COVID-19 [Unknown]

NARRATIVE: CASE EVENT DATE: 20211215
